FAERS Safety Report 25743888 (Version 1)
Quarter: 2025Q3

REPORT INFORMATION
  Report Type: Report from Study
  Country: EU (occurrence: EU)
  Receive Date: 20250831
  Receipt Date: 20250831
  Transmission Date: 20251021
  Serious: Yes (Other)
  Sender: ABBVIE
  Company Number: EU-ABBVIE-6400682

PATIENT
  Sex: Female

DRUGS (11)
  1. CARBIDOPA\LEVODOPA [Suspect]
     Active Substance: CARBIDOPA\LEVODOPA
     Indication: Parkinson^s disease
     Route: 050
     Dates: start: 20210816
  2. CARBIDOPA\LEVODOPA [Suspect]
     Active Substance: CARBIDOPA\LEVODOPA
  3. DULOXETINE [Concomitant]
     Active Substance: DULOXETINE
     Indication: Product used for unknown indication
  4. PROGESTERONE [Concomitant]
     Active Substance: PROGESTERONE
     Indication: Product used for unknown indication
  5. TROSPIUM CHLORIDE [Concomitant]
     Active Substance: TROSPIUM CHLORIDE
     Indication: Product used for unknown indication
  6. BENSERAZIDE HYDROCHLORIDE\LEVODOPA [Concomitant]
     Active Substance: BENSERAZIDE HYDROCHLORIDE\LEVODOPA
     Indication: Product used for unknown indication
  7. PREGABALIN [Concomitant]
     Active Substance: PREGABALIN
     Indication: Product used for unknown indication
  8. Spasmex [Concomitant]
     Indication: Product used for unknown indication
  9. B12 Ankermann [Concomitant]
     Indication: Product used for unknown indication
  10. CHOLECALCIFEROL [Concomitant]
     Active Substance: CHOLECALCIFEROL
     Indication: Product used for unknown indication
  11. ACETAMINOPHEN [Concomitant]
     Active Substance: ACETAMINOPHEN
     Indication: Pain

REACTIONS (24)
  - Foot operation [Unknown]
  - Pain [Unknown]
  - Therapeutic product effect incomplete [Unknown]
  - Device issue [Unknown]
  - Product size issue [Unknown]
  - Device dislocation [Unknown]
  - Tachypnoea [Unknown]
  - Hyperkinesia [Unknown]
  - Reduced facial expression [Unknown]
  - Muscle rigidity [Unknown]
  - Musculoskeletal disorder [Unknown]
  - Depressed mood [Unknown]
  - Initial insomnia [Unknown]
  - Dyspnoea [Unknown]
  - Abnormal dreams [Unknown]
  - Memory impairment [Unknown]
  - Device breakage [Unknown]
  - Tongue paralysis [Unknown]
  - Balance disorder [Unknown]
  - Gait disturbance [Unknown]
  - Nuchal rigidity [Unknown]
  - Bradykinesia [Unknown]
  - Arrhythmia [Unknown]
  - Vitamin B6 deficiency [Unknown]
